FAERS Safety Report 17312919 (Version 6)
Quarter: 2020Q2

REPORT INFORMATION
  Report Type: Report from Study
  Country: CA (occurrence: CA)
  Receive Date: 20200124
  Receipt Date: 20200619
  Transmission Date: 20200713
  Serious: Yes (Other)
  Sender: FDA-Public Use
  Company Number: CA-AMGEN-CANCT2020002414

PATIENT
  Age: 71 Year
  Sex: Female

DRUGS (8)
  1. AIMOVIG [Suspect]
     Active Substance: ERENUMAB-AOOE
     Dosage: UNK
     Route: 065
     Dates: start: 20191112
  2. IMITREX [Concomitant]
     Active Substance: SUMATRIPTAN SUCCINATE
     Indication: PRODUCT USED FOR UNKNOWN INDICATION
     Dosage: UNK
     Route: 065
  3. PREDNISONE. [Concomitant]
     Active Substance: PREDNISONE
     Indication: PRODUCT USED FOR UNKNOWN INDICATION
     Dosage: UNK
     Route: 065
  4. AIMOVIG [Suspect]
     Active Substance: ERENUMAB-AOOE
     Indication: MIGRAINE
     Dosage: 70 MG, QMO
     Route: 058
     Dates: start: 201910, end: 20191124
  5. AIMOVIG [Suspect]
     Active Substance: ERENUMAB-AOOE
     Dosage: UNK
     Route: 058
     Dates: start: 20191211
  6. AIMOVIG [Suspect]
     Active Substance: ERENUMAB-AOOE
     Dosage: UNK
     Route: 058
     Dates: start: 20200108, end: 20200528
  7. VENTOLINE [SALBUTAMOL SULFATE] [Concomitant]
     Active Substance: ALBUTEROL SULFATE
     Indication: PRODUCT USED FOR UNKNOWN INDICATION
     Dosage: UNK
     Route: 065
  8. CYMBALTA [Concomitant]
     Active Substance: DULOXETINE HYDROCHLORIDE
     Indication: PRODUCT USED FOR UNKNOWN INDICATION
     Dosage: UNK
     Route: 065

REACTIONS (13)
  - Joint swelling [Recovering/Resolving]
  - Arthralgia [Recovering/Resolving]
  - Migraine [Not Recovered/Not Resolved]
  - Fibromyalgia [Unknown]
  - Headache [Unknown]
  - Malaise [Unknown]
  - Sciatica [Recovering/Resolving]
  - Drug ineffective [Unknown]
  - Arthritis [Unknown]
  - Fatigue [Recovering/Resolving]
  - Gait disturbance [Recovering/Resolving]
  - Peripheral swelling [Recovering/Resolving]
  - Asthenia [Recovering/Resolving]

NARRATIVE: CASE EVENT DATE: 20200327
